FAERS Safety Report 8185682-3 (Version None)
Quarter: 2012Q1

REPORT INFORMATION
  Report Type: 
  Country: None (occurrence: None)
  Receive Date: 20120305
  Receipt Date: 20120224
  Transmission Date: 20120608
  Serious: Yes (Other)
  Sender: FDA-Public Use
  Company Number: PT-GILEAD-2012-0050221

PATIENT
  Sex: Male

DRUGS (11)
  1. EFAVIRENZ [Concomitant]
     Dosage: UNK
     Dates: start: 20060401
  2. METAMIZOL                          /06276702/ [Concomitant]
  3. ABC                                /00899201/ [Concomitant]
     Indication: HIV INFECTION
     Dosage: UNK
     Dates: start: 20111220
  4. LORAZEPAM [Concomitant]
  5. GABAPENTINA [Concomitant]
  6. TRAMADOL HCL [Concomitant]
  7. IBUPROFEN [Concomitant]
  8. LAMIVUDINE (EPIVIR HBV) [Concomitant]
     Indication: HIV INFECTION
     Dosage: UNK
     Dates: start: 20111220
  9. ABACAVIR SULFATE/LAMIVUDINE [Concomitant]
     Indication: HIV INFECTION
     Dosage: UNK
     Dates: start: 20120101
  10. TRUVADA [Suspect]
     Indication: HIV INFECTION
     Dosage: UNK
     Dates: start: 20060401
  11. QUETIAPINA KERN PHARMA [Concomitant]

REACTIONS (3)
  - CELLULITIS [None]
  - RENAL FAILURE ACUTE [None]
  - INJURY [None]
